FAERS Safety Report 12147398 (Version 1)
Quarter: 2016Q1

REPORT INFORMATION
  Report Type: Spontaneous
  Country: EC (occurrence: EC)
  Receive Date: 20160304
  Receipt Date: 20160304
  Transmission Date: 20160526
  Serious: Yes (Other)
  Sender: FDA-Public Use
  Company Number: PHHY2016EC026472

PATIENT
  Age: 60 Year
  Sex: Female

DRUGS (1)
  1. ACLASTA [Suspect]
     Active Substance: ZOLEDRONIC ACID
     Indication: PRODUCT USED FOR UNKNOWN INDICATION
     Route: 065

REACTIONS (15)
  - Eye pruritus [Unknown]
  - Vitreous floaters [Unknown]
  - Eyelid oedema [Unknown]
  - Conjunctivitis [Unknown]
  - Intraocular pressure increased [Unknown]
  - Photophobia [Unknown]
  - Uveitis [Recovering/Resolving]
  - Fatigue [Unknown]
  - Glaucoma [Unknown]
  - Eye irritation [Unknown]
  - Eye oedema [Unknown]
  - Eye pain [Unknown]
  - Eye inflammation [Unknown]
  - Ocular hyperaemia [Unknown]
  - Visual impairment [Unknown]

NARRATIVE: CASE EVENT DATE: 20160225
